FAERS Safety Report 10926576 (Version 1)
Quarter: 2015Q1

REPORT INFORMATION
  Report Type: Spontaneous
  Country: GB (occurrence: GB)
  Receive Date: 20150318
  Receipt Date: 20150318
  Transmission Date: 20150721
  Serious: Yes (Other)
  Sender: FDA-Public Use
  Company Number: CHNY2015GB000441

PATIENT

DRUGS (1)
  1. BOOTS NICASSIST [Suspect]
     Active Substance: NICOTINE BETADEX
     Indication: SMOKING CESSATION THERAPY
     Dosage: UNK
     Route: 065
     Dates: start: 1990

REACTIONS (3)
  - Gastrointestinal disorder [Unknown]
  - Drug dependence [Unknown]
  - Incorrect drug administration duration [Unknown]
